FAERS Safety Report 8478640-2 (Version None)
Quarter: 2012Q2

REPORT INFORMATION
  Report Type: 
  Country: None (occurrence: None)
  Receive Date: 20120629
  Receipt Date: 20120619
  Transmission Date: 20120825
  Serious: Yes (Hospitalization)
  Sender: FDA-Public Use
  Company Number: SE-PFIZER INC-2012154869

PATIENT
  Age: 64 Year
  Sex: Male

DRUGS (1)
  1. IBUPROFEN [Suspect]
     Dosage: 400MG CAPSULE
     Dates: start: 20110101, end: 20110101

REACTIONS (2)
  - JAUNDICE [None]
  - TRANSAMINASES INCREASED [None]
